FAERS Safety Report 23281530 (Version 1)
Quarter: 2023Q4

REPORT INFORMATION
  Report Type: Spontaneous
  Country: DE (occurrence: DE)
  Receive Date: 20231211
  Receipt Date: 20231211
  Transmission Date: 20240110
  Serious: Yes (Hospitalization, Other)
  Sender: FDA-Public Use
  Company Number: DE-ALKEM LABORATORIES LIMITED-DE-ALKEM-2023-15012

PATIENT
  Age: 5 Year
  Sex: Male
  Weight: 21 kg

DRUGS (9)
  1. IBUPROFEN [Suspect]
     Active Substance: IBUPROFEN
     Indication: Still^s disease
     Dosage: 200 MILLIGRAM (FILM-COATED TABLET)
     Route: 048
     Dates: start: 20161110
  2. NAPROXEN [Suspect]
     Active Substance: NAPROXEN
     Indication: Still^s disease
     Dosage: 250 MILLIGRAM
     Route: 048
     Dates: start: 20161110
  3. METHOTREXATE [Suspect]
     Active Substance: METHOTREXATE
     Indication: Still^s disease
     Dosage: 10 MILLIGRAM (EVERY 1 WEEK)
     Route: 058
     Dates: start: 20150512, end: 20151106
  4. TOCILIZUMAB [Suspect]
     Active Substance: TOCILIZUMAB
     Indication: Still^s disease
     Dosage: 200 MILLIGRAM, ONCE IN 2 WEEKS (EVERY 2 WEEK)
     Route: 042
     Dates: start: 20151030, end: 20160114
  5. INDOMETHACIN [Concomitant]
     Active Substance: INDOMETHACIN
     Indication: Still^s disease
     Dosage: 200 MILLIGRAM
     Route: 048
  6. INDOMETHACIN [Concomitant]
     Active Substance: INDOMETHACIN
     Dosage: 15 MILLIGRAM, QD (EVERY 1 DAY)
     Route: 048
     Dates: start: 20120703
  7. PREDNISONE [Concomitant]
     Active Substance: PREDNISONE
     Indication: Juvenile idiopathic arthritis
     Dosage: 1.25 MILLIGRAM
     Route: 048
  8. PREDNISONE [Concomitant]
     Active Substance: PREDNISONE
     Dosage: 2.5 MILLIGRAM, ONCE IN 2 WEEKS (EVERY 2 WEEKS)
     Route: 048
     Dates: start: 20151030
  9. PREDNISONE [Concomitant]
     Active Substance: PREDNISONE
     Dosage: 10 MILLIGRAM, QD (EVERY 1 DAY)
     Route: 048
     Dates: start: 20160125

REACTIONS (5)
  - Pneumonia [Not Recovered/Not Resolved]
  - Pleural effusion [Recovering/Resolving]
  - Pneumonia [Recovered/Resolved]
  - Intracranial pressure increased [Recovered/Resolved]
  - Headache [Recovered/Resolved]

NARRATIVE: CASE EVENT DATE: 20170515
